FAERS Safety Report 6864872-3 (Version None)
Quarter: 2010Q3

REPORT INFORMATION
  Report Type: 
  Country: None (occurrence: None)
  Receive Date: 20100721
  Receipt Date: 20080403
  Transmission Date: 20110219
  Serious: Yes (Other)
  Sender: FDA-Public Use
  Company Number: US-PFIZER INC-2008030732

PATIENT
  Sex: Female
  Weight: 95.5 kg

DRUGS (9)
  1. CHANTIX [Suspect]
     Indication: SMOKING CESSATION THERAPY
     Dates: start: 20080101, end: 20080402
  2. EFFEXOR XR [Concomitant]
  3. SEROQUEL [Concomitant]
  4. ABILIFY [Concomitant]
  5. LISINOPRIL [Concomitant]
     Indication: HYPERTENSION
  6. DOXEPIN HCL [Concomitant]
  7. FUROSEMIDE [Concomitant]
  8. LORATADINE [Concomitant]
  9. DOCUSATE SODIUM [Concomitant]
     Indication: CONSTIPATION

REACTIONS (1)
  - SUICIDAL IDEATION [None]
